FAERS Safety Report 5191723-8 (Version None)
Quarter: 2006Q4

REPORT INFORMATION
  Report Type: 
  Country: None (occurrence: None)
  Receive Date: 20061219
  Receipt Date: 20061208
  Transmission Date: 20070319
  Serious: Yes (Hospitalization)
  Sender: FDA-Public Use
  Company Number: 2006108773

PATIENT
  Age: 66 Year
  Sex: Male

DRUGS (5)
  1. LIPITOR [Suspect]
     Indication: BLOOD CHOLESTEROL INCREASED
     Dosage: 40 MG (40 MG, 1 IN 1 D); ORAL
     Route: 048
     Dates: end: 20060501
  2. PRIMIDONE [Suspect]
     Indication: TREMOR
     Dates: end: 20060501
  3. ENBREL [Suspect]
     Indication: RHEUMATOID ARTHRITIS
     Dosage: (25 MG, 2 IN 1 WK); PARENTERAL
     Route: 051
     Dates: start: 20010601, end: 20060313
  4. ALBYL-E 9ACETYLSALICYLIC ACID, MAGNESIUM OXIDE) [Concomitant]
  5. PREDNISOLONE [Concomitant]

REACTIONS (5)
  - ALVEOLITIS [None]
  - HEPATIC ENZYME INCREASED [None]
  - LUNG INFILTRATION [None]
  - PNEUMONIA [None]
  - PULMONARY FIBROSIS [None]
